FAERS Safety Report 5331072-8 (Version None)
Quarter: 2007Q2

REPORT INFORMATION
  Report Type: 
  Country: None (occurrence: None)
  Receive Date: 20070522
  Receipt Date: 20070516
  Transmission Date: 20071010
  Serious: Yes (Death, Life-Threatening)
  Sender: FDA-Public Use
  Company Number: ZING8314A

PATIENT
  Age: 0 Day
  Sex: Female
  Weight: 0.8 kg

DRUGS (5)
  1. CEFUROXIME [Suspect]
     Dosage: 6MG FOUR TIMES PER DAY
     Route: 042
  2. GENTAMICIN SULFATE [Concomitant]
  3. AMPICILLIN [Concomitant]
  4. ETHAMSYLATE [Concomitant]
  5. ALPHA TOCOPHEROL [Concomitant]

REACTIONS (4)
  - DEATH [None]
  - DRUG EXPOSURE DURING PREGNANCY [None]
  - PULMONARY HAEMORRHAGE [None]
  - RENAL FAILURE [None]
